FAERS Safety Report 9974802 (Version 1)
Quarter: 2014Q1

REPORT INFORMATION
  Report Type: Report from Study
  Country: US (occurrence: US)
  Receive Date: 20140306
  Receipt Date: 20140306
  Transmission Date: 20141002
  Serious: No
  Sender: FDA-Public Use
  Company Number: US-ABBVIE-13P-163-1156777-00

PATIENT
  Age: 60 Year
  Sex: Female

DRUGS (15)
  1. HUMIRA [Suspect]
     Indication: CROHN^S DISEASE
     Dates: start: 20130801, end: 20130801
  2. HUMIRA [Suspect]
     Dates: start: 20130815, end: 20130815
  3. HUMIRA [Suspect]
  4. FISH OIL [Concomitant]
     Indication: PRODUCT USED FOR UNKNOWN INDICATION
     Dosage: 1200 MG DAILY
  5. CENTRUM [Concomitant]
     Indication: PRODUCT USED FOR UNKNOWN INDICATION
  6. CULTURELLE [Concomitant]
     Indication: PRODUCT USED FOR UNKNOWN INDICATION
  7. CITALOPRAM [Concomitant]
     Indication: VASOCONSTRICTION
     Dosage: 40 MG DAILY
  8. PANTOPRAZOLE [Concomitant]
     Indication: PRODUCT USED FOR UNKNOWN INDICATION
  9. METOPROLOL [Concomitant]
     Indication: PRODUCT USED FOR UNKNOWN INDICATION
     Dosage: 50 MG DAILY
  10. VITAMIN D [Concomitant]
     Indication: PRODUCT USED FOR UNKNOWN INDICATION
  11. LYSINE [Concomitant]
     Indication: PRODUCT USED FOR UNKNOWN INDICATION
     Dosage: 1-2 PILLS A DAY
  12. DICYCLOMINE [Concomitant]
     Indication: ABDOMINAL PAIN
  13. TYLENOL [Concomitant]
     Indication: PAIN
  14. TRIAMTERENE/HCTZ [Concomitant]
     Indication: PRODUCT USED FOR UNKNOWN INDICATION
     Dosage: 37/25MG DAILY ONE TABLET
  15. TRIAMTERENE/HCTZ [Concomitant]
     Dosage: 37/25MG DAILY 1.5 TABLETS DAILY

REACTIONS (4)
  - Fatigue [Unknown]
  - Hyperaesthesia [Recovering/Resolving]
  - Headache [Recovering/Resolving]
  - Fluid retention [Unknown]
